FAERS Safety Report 8118131-1 (Version None)
Quarter: 2012Q1

REPORT INFORMATION
  Report Type: 
  Country: None (occurrence: None)
  Receive Date: 20120207
  Receipt Date: 20120203
  Transmission Date: 20120608
  Serious: No
  Sender: FDA-Public Use
  Company Number: US-PFIZER INC-2012030818

PATIENT
  Sex: Male

DRUGS (4)
  1. MORPHINE [Interacting]
     Indication: PAIN
     Dosage: 50 MG, AS NEEDED
  2. TRAMADOL [Concomitant]
     Indication: PAIN
     Dosage: UNK, AS NEEDED
  3. SUTENT [Suspect]
     Indication: METASTATIC RENAL CELL CARCINOMA
     Dosage: 50 MG, UNK
     Dates: start: 20110101, end: 20120101
  4. TYLENOL PM [Concomitant]
     Indication: SLEEP DISORDER
     Dosage: UNK, AS NEEDED

REACTIONS (9)
  - PLATELET COUNT DECREASED [None]
  - BOWEL MOVEMENT IRREGULARITY [None]
  - DYSGEUSIA [None]
  - ORAL DISCOMFORT [None]
  - DRUG INTERACTION [None]
  - DRY MOUTH [None]
  - PAIN [None]
  - MALAISE [None]
  - WEIGHT DECREASED [None]
